FAERS Safety Report 25139472 (Version 1)
Quarter: 2025Q1

REPORT INFORMATION
  Report Type: Report from Study
  Country: IN (occurrence: IN)
  Receive Date: 20250331
  Receipt Date: 20250331
  Transmission Date: 20250409
  Serious: Yes (Hospitalization)
  Sender: ROCHE
  Company Number: IN-ROCHE-10000186647

PATIENT
  Age: 71 Year
  Sex: Male
  Weight: 72 kg

DRUGS (2)
  1. TECENTRIQ [Suspect]
     Active Substance: ATEZOLIZUMAB
     Indication: Lung neoplasm malignant
     Route: 042
     Dates: start: 20240703
  2. TECENTRIQ [Suspect]
     Active Substance: ATEZOLIZUMAB
     Route: 042

REACTIONS (6)
  - Weight decreased [Unknown]
  - Haemoglobin decreased [Unknown]
  - Neutrophil count increased [Unknown]
  - Chronic obstructive pulmonary disease [Unknown]
  - Ill-defined disorder [Unknown]
  - Loss of consciousness [Unknown]
